FAERS Safety Report 6554171-1 (Version None)
Quarter: 2010Q1

REPORT INFORMATION
  Report Type: 
  Country: None (occurrence: None)
  Receive Date: 20100127
  Receipt Date: 20100122
  Transmission Date: 20100710
  Serious: Yes (Death)
  Sender: FDA-Public Use
  Company Number: US-CELGENEUS-008-CCAZA-10011752

PATIENT
  Age: 6 Month

DRUGS (2)
  1. AZACITIDINE INJECTABLE [Suspect]
     Indication: JUVENILE CHRONIC MYELOMONOCYTIC LEUKAEMIA
     Route: 051
  2. CYTOSINE-ARABINOSIDE [Concomitant]
     Indication: JUVENILE CHRONIC MYELOMONOCYTIC LEUKAEMIA
     Route: 051

REACTIONS (3)
  - ACUTE RESPIRATORY DISTRESS SYNDROME [None]
  - LEUKAEMIC INFILTRATION PULMONARY [None]
  - RESPIRATORY SYNCYTIAL VIRUS INFECTION [None]
